FAERS Safety Report 5838589-8 (Version None)
Quarter: 2008Q3

REPORT INFORMATION
  Report Type: 
  Country: None (occurrence: None)
  Receive Date: 20080808
  Receipt Date: 20080509
  Transmission Date: 20090109
  Serious: No
  Sender: FDA-Public Use
  Company Number: A0727246A

PATIENT
  Age: 48 Year
  Sex: Female

DRUGS (3)
  1. ALTABAX [Suspect]
     Indication: INFECTION
     Route: 061
     Dates: start: 20080505, end: 20080507
  2. XALATAN [Concomitant]
  3. BIRTH CONTROL [Concomitant]

REACTIONS (1)
  - APPLICATION SITE DISCHARGE [None]
